FAERS Safety Report 10149209 (Version 1)
Quarter: 2014Q2

REPORT INFORMATION
  Report Type: Spontaneous
  Country: US (occurrence: None)
  Receive Date: 20140501
  Receipt Date: 20140501
  Transmission Date: 20141212
  Serious: Yes (Hospitalization)
  Sender: FDA-Public Use
  Company Number: None

PATIENT
  Age: 76 Year
  Sex: Male

DRUGS (10)
  1. HYDROMORPHONE [Suspect]
     Indication: PAIN
     Route: 042
     Dates: start: 20130615, end: 20130621
  2. HEPARIN [Concomitant]
  3. FAMOTIDINE [Concomitant]
  4. METRONIDAZOLE [Concomitant]
  5. PIPERACILLIN/TAZOBACTAM [Concomitant]
  6. POTASSIUM CHLORIDE [Concomitant]
  7. VANCOMYCIN [Concomitant]
  8. NORMAL SALINE [Concomitant]
  9. LACTATED RINGERS [Concomitant]
  10. ALBUTEROL [Concomitant]

REACTIONS (1)
  - Respiratory rate increased [None]
